FAERS Safety Report 10617640 (Version 1)
Quarter: 2014Q4

REPORT INFORMATION
  Report Type: Spontaneous
  Country: DE (occurrence: DE)
  Receive Date: 20141201
  Receipt Date: 20141201
  Transmission Date: 20150529
  Serious: Yes (Other)
  Sender: FDA-Public Use
  Company Number: DE-WATSON-2014-25790

PATIENT

DRUGS (13)
  1. BELOC                              /00376903/ [Concomitant]
     Active Substance: METOPROLOL TARTRATE
     Indication: RENAL HYPERTENSION
     Dosage: 70.75 MG, DAILY
     Route: 064
     Dates: start: 20140114, end: 20140114
  2. PARTUSISTEN [Concomitant]
     Active Substance: FENOTEROL
     Indication: TOCOLYSIS
     Dosage: UNK, UNKNOWN
     Route: 064
     Dates: start: 20140114, end: 20140114
  3. L THYROXIN HENNING [Concomitant]
     Indication: HYPOTHYROIDISM
     Dosage: 25 ?G, DAILY
     Route: 064
     Dates: start: 20130702, end: 20140114
  4. DEKRISTOL [Concomitant]
     Active Substance: CHOLECALCIFEROL
     Indication: VITAMIN SUPPLEMENTATION
     Dosage: 20000 I.E./WK
     Route: 064
     Dates: start: 20130702, end: 20131217
  5. BETAMETHASONE [Concomitant]
     Active Substance: BETAMETHASONE
     Indication: MATERNAL THERAPY TO ENHANCE FOETAL LUNG MATURITY
     Dosage: UNK, UNKNOWN
     Route: 064
  6. ADALAT [Concomitant]
     Active Substance: NIFEDIPINE
     Indication: TOCOLYSIS
     Dosage: UNK, UNKNOWN
     Route: 064
  7. METHYLDOPA (UNKNOWN) [Suspect]
     Active Substance: METHYLDOPA
     Indication: RENAL HYPERTENSION
     Dosage: 250 MG, BID
     Route: 064
     Dates: start: 20130702, end: 20140114
  8. FOLIC ACID. [Concomitant]
     Active Substance: FOLIC ACID
     Indication: PROPHYLAXIS OF NEURAL TUBE DEFECT
     Dosage: 0.6 MG, DAILY
     Route: 064
     Dates: start: 20130702, end: 20131217
  9. AZATHIOPRINE (UNKNOWN) [Suspect]
     Active Substance: AZATHIOPRINE
     Indication: PROPHYLAXIS AGAINST TRANSPLANT REJECTION
     Dosage: 100 MG, DAILY
     Route: 064
     Dates: start: 20130702, end: 20140114
  10. AMLODIPINE [Concomitant]
     Active Substance: AMLODIPINE BESYLATE
     Indication: RENAL HYPERTENSION
     Dosage: 7.5 MG, DAILY
     Route: 064
  11. AMPICILLIN [Concomitant]
     Active Substance: AMPICILLIN
     Indication: ANTIBIOTIC PROPHYLAXIS
     Dosage: UNK, UNKNOWN
     Route: 064
     Dates: start: 20140114, end: 20140114
  12. METOPROLOL SUCCINATE (UNKNOWN) [Suspect]
     Active Substance: METOPROLOL SUCCINATE
     Indication: RENAL HYPERTENSION
     Dosage: 142.5 MG, DAILY
     Route: 064
     Dates: start: 20130702, end: 20131217
  13. PROGRAF [Suspect]
     Active Substance: TACROLIMUS\TACROLIMUS ANHYDROUS
     Indication: PROPHYLAXIS AGAINST TRANSPLANT REJECTION
     Dosage: 5.5 MG, DAILY
     Route: 064
     Dates: start: 20130702, end: 20140114

REACTIONS (2)
  - Foetal exposure during pregnancy [Unknown]
  - Hydrops foetalis [Unknown]
